FAERS Safety Report 8157749-7 (Version None)
Quarter: 2012Q1

REPORT INFORMATION
  Report Type: 
  Country: None (occurrence: None)
  Receive Date: 20120222
  Receipt Date: 20120215
  Transmission Date: 20120608
  Serious: Yes (Other)
  Sender: FDA-Public Use
  Company Number: IE-PFIZER INC-2011295931

PATIENT
  Sex: Female

DRUGS (1)
  1. PHENYTOIN SODIUM [Suspect]
     Dosage: 250MG/5ML

REACTIONS (2)
  - OCCUPATIONAL EXPOSURE TO DRUG [None]
  - HAEMORRHAGE [None]
